FAERS Safety Report 8106276-1 (Version None)
Quarter: 2012Q1

REPORT INFORMATION
  Report Type: 
  Country: None (occurrence: None)
  Receive Date: 20120202
  Receipt Date: 20120125
  Transmission Date: 20120608
  Serious: Yes (Hospitalization)
  Sender: FDA-Public Use
  Company Number: US-CELGENEUS-163-21880-11120452

PATIENT
  Sex: Female

DRUGS (3)
  1. MAXALT [Concomitant]
     Indication: MIGRAINE
     Route: 065
  2. REVLIMID [Suspect]
     Indication: MULTIPLE MYELOMA
     Dosage: 25 MILLIGRAM
     Route: 048
     Dates: start: 20111115
  3. CELEXA [Concomitant]
     Indication: MIGRAINE
     Route: 065

REACTIONS (9)
  - HYPERTENSION [None]
  - NEUROPATHY PERIPHERAL [None]
  - ANGINA PECTORIS [None]
  - DIARRHOEA [None]
  - OEDEMA PERIPHERAL [None]
  - CONFUSIONAL STATE [None]
  - FATIGUE [None]
  - ANXIETY [None]
  - HEADACHE [None]
